FAERS Safety Report 9629555 (Version 1)
Quarter: 2013Q4

REPORT INFORMATION
  Report Type: Spontaneous
  Country: US (occurrence: US)
  Receive Date: 20131017
  Receipt Date: 20131017
  Transmission Date: 20140711
  Serious: Yes (Hospitalization, Other)
  Sender: FDA-Public Use
  Company Number: US-ELI_LILLY_AND_COMPANY-US201310004386

PATIENT
  Sex: Male

DRUGS (2)
  1. CIALIS [Suspect]
     Indication: ERECTILE DYSFUNCTION
     Dosage: 20 MG, PRN
     Route: 048
  2. CIALIS [Suspect]
     Indication: PROMOTION OF WOUND HEALING
     Dosage: 5 MG, QD
     Route: 048
     Dates: start: 201309

REACTIONS (2)
  - Prostate cancer [Unknown]
  - Wrong technique in drug usage process [Unknown]
